FAERS Safety Report 18563685 (Version 2)
Quarter: 2020Q4

REPORT INFORMATION
  Report Type: Spontaneous
  Country: JP (occurrence: JP)
  Receive Date: 20201201
  Receipt Date: 20201209
  Transmission Date: 20210114
  Serious: Yes (Other)
  Sender: FDA-Public Use
  Company Number: JP-ASTELLAS-2020JP017899

PATIENT
  Age: 9 Decade
  Sex: Female

DRUGS (1)
  1. BETANIS [Suspect]
     Active Substance: MIRABEGRON
     Indication: HYPERTONIC BLADDER
     Dosage: 50 MG/DAY, UNKNOWN FREQ.
     Route: 048
     Dates: start: 20201016

REACTIONS (5)
  - Congestive cardiomyopathy [Unknown]
  - Flatulence [Unknown]
  - Abdominal distension [Unknown]
  - Hypertension [Unknown]
  - Urinary retention [Unknown]
